FAERS Safety Report 9750086 (Version 2)
Quarter: 2015Q3

REPORT INFORMATION
  Report Type: Spontaneous
  Country: GB (occurrence: GB)
  Receive Date: 20131212
  Receipt Date: 20150730
  Transmission Date: 20151125
  Serious: No
  Sender: FDA-Public Use
  Company Number: GB-GILEAD-GB-CVT-100006

PATIENT
  Age: 69 Year
  Sex: Male

DRUGS (17)
  1. ASPIRIN                            /00002701/ [Concomitant]
     Active Substance: ASPIRIN
  2. TAMSULOSIN [Concomitant]
     Active Substance: TAMSULOSIN
  3. CLOPIDOGREL                        /01220701/ [Concomitant]
  4. OMEPRAZOL [Concomitant]
     Active Substance: OMEPRAZOLE
  5. NICORANDIL [Concomitant]
     Active Substance: NICORANDIL
  6. GLICLAZIDE [Concomitant]
     Active Substance: GLICLAZIDE
  7. AMITRIPTYLINE                      /00002201/ [Concomitant]
  8. CANDESARTAN [Concomitant]
     Active Substance: CANDESARTAN
  9. SIMVASTATIN. [Concomitant]
     Active Substance: SIMVASTATIN
  10. ISOSORBIDE MONONITRATE. [Concomitant]
     Active Substance: ISOSORBIDE MONONITRATE
  11. RANITIDINE                         /00550801/ [Concomitant]
  12. BISOPROLOL                         /00802601/ [Concomitant]
     Active Substance: BISOPROLOL
  13. RANEXA [Suspect]
     Active Substance: RANOLAZINE
     Indication: ANGINA PECTORIS
  14. AMLODIPINE [Concomitant]
     Active Substance: AMLODIPINE BESYLATE
  15. METFORMIN                          /00082701/ [Concomitant]
  16. FRUSEMIDE [Concomitant]
     Active Substance: FUROSEMIDE
  17. INSULIN                            /00030501/ [Concomitant]

REACTIONS (1)
  - Tremor [Recovered/Resolved]
